FAERS Safety Report 23052220 (Version 2)
Quarter: 2023Q4

REPORT INFORMATION
  Report Type: Spontaneous
  Country: GB (occurrence: GB)
  Receive Date: 20231010
  Receipt Date: 20231013
  Transmission Date: 20240110
  Serious: Yes (Hospitalization)
  Sender: FDA-Public Use
  Company Number: GB-CELLTRION INC.-2023GB019440

PATIENT

DRUGS (1)
  1. ADALIMUMAB [Suspect]
     Active Substance: ADALIMUMAB
     Indication: Product used for unknown indication
     Dosage: UNK (ADDITIONAL INFORMATION ON DRUG: UNIT=NOT AVAILABLE)
     Route: 065

REACTIONS (1)
  - Anaemia [Recovering/Resolving]
